FAERS Safety Report 4507394-7 (Version None)
Quarter: 2004Q4

REPORT INFORMATION
  Report Type: 
  Country: None (occurrence: None)
  Receive Date: 20041118
  Receipt Date: 20041105
  Transmission Date: 20050328
  Serious: Yes (Other)
  Sender: FDA-Public Use
  Company Number: 2004065245

PATIENT
  Age: 47 Year
  Sex: Female
  Weight: 116.1208 kg

DRUGS (7)
  1. NEURONTIN [Suspect]
     Indication: DIABETIC NEUROPATHY
     Dosage: 2400 MG (800 MG, 3 IN 1 D), ORAL
     Route: 048
  2. VENLAFAXINE HCL [Suspect]
     Indication: ILL-DEFINED DISORDER
     Dosage: 150 MG (150 MG, 1 IN 1 D), ORAL
     Route: 048
  3. METFORMIN HCL [Concomitant]
  4. SALBUTAMOL (SALBUTAMOL) [Concomitant]
  5. PANTOPRAZOLE (PANTOPRAZOLE) [Concomitant]
  6. PHAZYME (DIASTASE, PANCREATIN, PEPSIN, SIMETICONE) [Concomitant]
  7. CELECOXIB (CELECOXIB) [Concomitant]

REACTIONS (5)
  - BLOOD GLUCOSE INCREASED [None]
  - CONDITION AGGRAVATED [None]
  - DIABETIC NEUROPATHY [None]
  - FALSE POSITIVE LABORATORY RESULT [None]
  - INSOMNIA [None]
